FAERS Safety Report 18287917 (Version 1)
Quarter: 2020Q3

REPORT INFORMATION
  Report Type: Spontaneous
  Country: US (occurrence: US)
  Receive Date: 20200918
  Receipt Date: 20200918
  Transmission Date: 20201103
  Serious: Yes (Hospitalization, Disabling)
  Sender: FDA-Public Use
  Company Number: None

PATIENT
  Age: 46 Year
  Sex: Female
  Weight: 96.75 kg

DRUGS (5)
  1. WELLBUTRIN [Concomitant]
     Active Substance: BUPROPION HYDROCHLORIDE
  2. IBUPROFEN. [Concomitant]
     Active Substance: IBUPROFEN
  3. NATURE?THROID [Suspect]
     Active Substance: THYROID, PORCINE
     Indication: HYPOTHYROIDISM
     Dosage: ?          QUANTITY:1 TABLET(S);?
     Route: 048
     Dates: start: 20181001, end: 20200915
  4. MULTI?VITAMIN [Concomitant]
     Active Substance: .ALPHA.-TOCOPHEROL ACETATE, DL-\ASCORBIC ACID\CYANOCOBALAMIN\FLUORIDE ION\FOLIC ACID\NIACIN\PYRIDOXINE\RIBOFLAVIN\THIAMINE\VITAMIN A\VITAMIN D
  5. TRIAMTERENE. [Concomitant]
     Active Substance: TRIAMTERENE

REACTIONS (17)
  - Swelling [None]
  - Crying [None]
  - Swelling face [None]
  - Pain [None]
  - Goitre [None]
  - Headache [None]
  - Depression [None]
  - Asthenia [None]
  - Stress [None]
  - Insomnia [None]
  - Panic attack [None]
  - Weight increased [None]
  - Fatigue [None]
  - Heart rate increased [None]
  - Peripheral swelling [None]
  - Syncope [None]
  - Loss of employment [None]

NARRATIVE: CASE EVENT DATE: 20181003
